FAERS Safety Report 14435349 (Version 2)
Quarter: 2018Q3

REPORT INFORMATION
  Report Type: Report from Study
  Country: US (occurrence: US)
  Receive Date: 20180125
  Receipt Date: 20180723
  Transmission Date: 20181010
  Serious: Yes (Hospitalization, Other)
  Sender: FDA-Public Use
  Company Number: US-TAKEDA-2018TUS001474

PATIENT
  Age: 38 Year
  Sex: Female
  Weight: 76.19 kg

DRUGS (2)
  1. VEDOLIZUMAB [Suspect]
     Active Substance: VEDOLIZUMAB
     Indication: CROHN^S DISEASE
     Dosage: 300 MG, UNK
     Route: 042
     Dates: start: 201608
  2. VANCOMYCIN [Suspect]
     Active Substance: VANCOMYCIN
     Indication: ESCHERICHIA SEPSIS
     Dosage: UNK
     Route: 042

REACTIONS (18)
  - Fungal infection [Not Recovered/Not Resolved]
  - Dyspnoea [Unknown]
  - Tongue coated [Unknown]
  - Blood pressure increased [Recovered/Resolved]
  - Abdominal pain lower [Unknown]
  - Upper respiratory tract infection [Recovered/Resolved]
  - Bronchitis chronic [Recovered/Resolved]
  - Heart rate increased [Recovered/Resolved]
  - Pyrexia [Unknown]
  - Viral infection [Unknown]
  - Urticaria [Unknown]
  - Rash erythematous [Unknown]
  - Escherichia sepsis [Recovered/Resolved]
  - Vulvovaginal candidiasis [Not Recovered/Not Resolved]
  - Dry mouth [Unknown]
  - Gallbladder disorder [Unknown]
  - Cough [Unknown]
  - Dyspepsia [Unknown]

NARRATIVE: CASE EVENT DATE: 201803
